FAERS Safety Report 21705945 (Version 2)
Quarter: 2023Q1

REPORT INFORMATION
  Report Type: Spontaneous
  Country: JP (occurrence: JP)
  Receive Date: 20221209
  Receipt Date: 20230123
  Transmission Date: 20230418
  Serious: Yes (Death)
  Sender: FDA-Public Use
  Company Number: JP-GILEAD-2022-0608174

PATIENT
  Age: 82 Year
  Sex: Male

DRUGS (1)
  1. VEKLURY [Suspect]
     Active Substance: REMDESIVIR
     Indication: COVID-19
     Dosage: UNK
     Route: 041
     Dates: start: 20221205, end: 20221206

REACTIONS (2)
  - Coronavirus infection [Fatal]
  - Pneumatosis [Unknown]

NARRATIVE: CASE EVENT DATE: 20221206
